FAERS Safety Report 9233456 (Version 1)
Quarter: 2013Q2

REPORT INFORMATION
  Report Type: Spontaneous
  Country: US (occurrence: US)
  Receive Date: 20130416
  Receipt Date: 20130416
  Transmission Date: 20140414
  Serious: No
  Sender: FDA-Public Use
  Company Number: US-MYLANLABS-2012S1007365

PATIENT
  Sex: Female

DRUGS (3)
  1. PAROXETINE HYDROCHLORIDE TABLETS [Suspect]
     Indication: DEPRESSION
     Route: 048
     Dates: start: 201110, end: 201112
  2. PAROXETINE HYDROCHLORIDE TABLETS [Suspect]
     Indication: DEPRESSION
     Route: 048
     Dates: start: 201112
  3. ADDERALL [Interacting]
     Indication: DISTURBANCE IN ATTENTION
     Route: 048
     Dates: start: 2011

REACTIONS (7)
  - Depression [Not Recovered/Not Resolved]
  - Mood swings [Not Recovered/Not Resolved]
  - Somnolence [Not Recovered/Not Resolved]
  - Nausea [Not Recovered/Not Resolved]
  - Decreased appetite [Not Recovered/Not Resolved]
  - Drug interaction [Not Recovered/Not Resolved]
  - Disturbance in attention [Not Recovered/Not Resolved]
